FAERS Safety Report 5572344-1 (Version None)
Quarter: 2007Q4

REPORT INFORMATION
  Report Type: 
  Country: None (occurrence: None)
  Receive Date: 20071219
  Receipt Date: 20071129
  Transmission Date: 20080405
  Serious: Yes (Death)
  Sender: FDA-Public Use
  Company Number: 2007US003003

PATIENT
  Age: 24 Week
  Sex: 0
  Weight: 0.7 kg

DRUGS (1)
  1. AMBISOME [Suspect]
     Indication: SYSTEMIC CANDIDA

REACTIONS (3)
  - DRUG INEFFECTIVE [None]
  - RENAL FAILURE [None]
  - SYSTEMIC CANDIDA [None]
